FAERS Safety Report 16375946 (Version 1)
Quarter: 2019Q2

REPORT INFORMATION
  Report Type: Spontaneous
  Country: GB (occurrence: GB)
  Receive Date: 20190531
  Receipt Date: 20190531
  Transmission Date: 20190711
  Serious: Yes (Other)
  Sender: FDA-Public Use
  Company Number: GB-TEVA-2019-GB-1056665

PATIENT
  Age: 65 Year
  Sex: Female

DRUGS (1)
  1. ALENDRONIC ACID [Suspect]
     Active Substance: ALENDRONIC ACID
     Indication: OSTEOPOROSIS
     Route: 048
     Dates: end: 201610

REACTIONS (7)
  - Product substitution issue [Unknown]
  - Foreign body in respiratory tract [Unknown]
  - Aphonia [Recovered/Resolved]
  - Gastrooesophageal reflux disease [Recovered/Resolved]
  - Pharyngeal ulceration [Recovered/Resolved]
  - Laryngeal oedema [Unknown]
  - Throat irritation [Recovered/Resolved]

NARRATIVE: CASE EVENT DATE: 20160930
